FAERS Safety Report 4479618-6 (Version None)
Quarter: 2004Q4

REPORT INFORMATION
  Report Type: 
  Country: None (occurrence: None)
  Receive Date: 20041018
  Receipt Date: 20040621
  Transmission Date: 20050328
  Serious: No
  Sender: FDA-Public Use
  Company Number: APOD401.023

PATIENT
  Age: 48 Year
  Sex: Female

DRUGS (6)
  1. APOMORPHINE HYDROCHLORIDE INJECTION, FORUM PRODUCTS LTD, 41-51 BRIGHTO [Suspect]
     Indication: PARKINSON'S DISEASE
     Dosage: 5 MG SUBCUTANEOUS OCCASIONALLY
     Route: 058
     Dates: start: 20020101
  2. LEVODOPA [Concomitant]
  3. ROPINIROLE [Concomitant]
  4. ENTACAPONE [Concomitant]
  5. CLONAZEPAM [Concomitant]
  6. CARBAMAZEPINE [Concomitant]

REACTIONS (4)
  - DISSEMINATED INTRAVASCULAR COAGULATION [None]
  - FEELING ABNORMAL [None]
  - SEPSIS [None]
  - SHOCK [None]
